FAERS Safety Report 9831045 (Version 3)
Quarter: 2014Q1

REPORT INFORMATION
  Report Type: Report from Study
  Country: CA (occurrence: CA)
  Receive Date: 20140120
  Receipt Date: 20140304
  Transmission Date: 20141002
  Serious: Yes (Hospitalization, Other)
  Sender: FDA-Public Use
  Company Number: PHHY2010CA46004

PATIENT
  Age: 37 Year
  Sex: Male

DRUGS (4)
  1. EXJADE [Suspect]
     Indication: THALASSAEMIA
     Dosage: 2500 MG, QD
     Route: 048
     Dates: start: 200706, end: 20100704
  2. EXJADE [Suspect]
     Dosage: 2500 MG, QD
     Route: 048
  3. COUMADIN SODIUM [Concomitant]
     Dosage: UNK UKN, UNK
  4. CALCIUM [Concomitant]
     Dosage: UNK UKN, UNK

REACTIONS (6)
  - Cholelithiasis [Recovered/Resolved]
  - Malaise [Recovered/Resolved]
  - Ulcer haemorrhage [Recovered/Resolved]
  - Gastric disorder [Recovered/Resolved]
  - Pain [Recovered/Resolved]
  - Sleep disorder [Recovered/Resolved]
